FAERS Safety Report 12166627 (Version 1)
Quarter: 2016Q1

REPORT INFORMATION
  Report Type: Spontaneous
  Country: MX (occurrence: MX)
  Receive Date: 20160310
  Receipt Date: 20160310
  Transmission Date: 20160526
  Serious: Yes (Death)
  Sender: FDA-Public Use
  Company Number: MX-ROCHE-1721805

PATIENT
  Age: 60 Year
  Sex: Male
  Weight: 57 kg

DRUGS (8)
  1. VINCRISTINE [Concomitant]
     Active Substance: VINCRISTINE
     Route: 065
     Dates: start: 20140901
  2. IFOSFAMIDE. [Suspect]
     Active Substance: IFOSFAMIDE
     Indication: NON-HODGKIN^S LYMPHOMA
     Dosage: DOSE: 3400 X 3; SECOND TREATMENT
     Route: 065
     Dates: start: 20150617
  3. EPIRUBICIN [Concomitant]
     Active Substance: EPIRUBICIN
     Route: 065
     Dates: start: 20140901
  4. ETOPOSIDE. [Suspect]
     Active Substance: ETOPOSIDE
     Indication: NON-HODGKIN^S LYMPHOMA
     Dosage: DOSE: 125 X 3; SECOND TREATMENT
     Route: 065
     Dates: start: 20150617
  5. CYCLOPHOSPHAMIDE. [Concomitant]
     Active Substance: CYCLOPHOSPHAMIDE
     Route: 065
     Dates: start: 20140901
  6. CARBOPLATIN. [Suspect]
     Active Substance: CARBOPLATIN
     Indication: NON-HODGKIN^S LYMPHOMA
     Dosage: DOSE: 400 X 3; SECOND TREATMENT
     Route: 065
     Dates: start: 20150617
  7. MABTHERA [Suspect]
     Active Substance: RITUXIMAB
     Dosage: INDUCTION
     Route: 042
     Dates: start: 20140901
  8. MABTHERA [Suspect]
     Active Substance: RITUXIMAB
     Indication: NON-HODGKIN^S LYMPHOMA
     Dosage: SECOND TREATMENT
     Route: 042
     Dates: start: 20150617

REACTIONS (1)
  - Death [Fatal]
